FAERS Safety Report 11897645 (Version 4)
Quarter: 2016Q1

REPORT INFORMATION
  Report Type: Spontaneous
  Country: US (occurrence: US)
  Receive Date: 20160108
  Receipt Date: 20160315
  Transmission Date: 20160526
  Serious: Yes (Hospitalization, Other)
  Sender: FDA-Public Use
  Company Number: US-009507513-1601USA001586

PATIENT
  Sex: Female
  Weight: 61 kg

DRUGS (4)
  1. NIASPAN [Suspect]
     Active Substance: NIACIN
     Dosage: 500 MG, 1 A DAY
     Dates: start: 2010
  2. FOLIC ACID. [Concomitant]
     Active Substance: FOLIC ACID
     Dosage: 6 TABLET DAILY
     Route: 048
     Dates: start: 20100428
  3. LEVOTHYROXINE SODIUM. [Concomitant]
     Active Substance: LEVOTHYROXINE SODIUM
     Indication: THYROID DISORDER
     Dosage: 1 TABLET DAILY
     Route: 048
     Dates: start: 20100503
  4. ZETIA [Suspect]
     Active Substance: EZETIMIBE
     Indication: HYPERLIPIDAEMIA
     Dosage: 1 TABLET DAILY
     Route: 048
     Dates: start: 20100208

REACTIONS (3)
  - Chest pain [Unknown]
  - Deafness [Unknown]
  - Coronary artery disease [Unknown]

NARRATIVE: CASE EVENT DATE: 2011
